FAERS Safety Report 5326755-X (Version None)
Quarter: 2007Q2

REPORT INFORMATION
  Report Type: 
  Country: None (occurrence: None)
  Receive Date: 20070516
  Receipt Date: 20070504
  Transmission Date: 20071010
  Serious: Yes (Other)
  Sender: FDA-Public Use
  Company Number: US-PFIZER INC-2007021612

PATIENT
  Sex: Female
  Weight: 90.7 kg

DRUGS (12)
  1. EXUBERA [Suspect]
     Indication: DIABETES MELLITUS NON-INSULIN-DEPENDENT
     Dates: start: 20070310, end: 20070311
  2. CELEBREX [Suspect]
  3. VITAMIN CAP [Concomitant]
     Dates: start: 20060101
  4. CALCIUM CHLORIDE [Concomitant]
     Dates: start: 20060101
  5. CHEMOTHERAPY NOS [Concomitant]
  6. LOVENOX [Concomitant]
     Dosage: DAILY DOSE:.3ML
  7. LANTUS [Concomitant]
     Dosage: TEXT:68 UNITS
  8. WELLBUTRIN [Concomitant]
     Dosage: DAILY DOSE:150MG
  9. SYNTHROID [Concomitant]
  10. MONTELUKAST SODIUM [Concomitant]
     Dosage: DAILY DOSE:10MG
  11. ADVAIR DISKUS 100/50 [Concomitant]
     Dosage: TEXT:500
  12. NEURONTIN [Concomitant]
     Dates: start: 20070306

REACTIONS (3)
  - PANCREATIC NEOPLASM [None]
  - RASH ERYTHEMATOUS [None]
  - THROMBOCYTOPENIA [None]
